FAERS Safety Report 20107944 (Version 1)
Quarter: 2021Q4

REPORT INFORMATION
  Report Type: Spontaneous
  Country: US (occurrence: None)
  Receive Date: 20211123
  Receipt Date: 20211123
  Transmission Date: 20220304
  Serious: Yes (Hospitalization)
  Sender: FDA-Public Use
  Company Number: None

PATIENT
  Sex: Male

DRUGS (16)
  1. AMBRISENTAN [Suspect]
     Active Substance: AMBRISENTAN
     Indication: Pulmonary hypertension
     Dosage: FREQUENCY : DAILY;?
     Route: 048
     Dates: start: 20190820
  2. SILDENAFIL [Suspect]
     Active Substance: SILDENAFIL
     Indication: Pulmonary hypertension
     Dosage: FREQUENCY : 3 TIMES A DAY;?
     Route: 048
     Dates: start: 20190426
  3. ALBUTEROL [Concomitant]
     Active Substance: ALBUTEROL
  4. ATAZANAVIR [Concomitant]
     Active Substance: ATAZANAVIR
  5. ATORVASTATIN [Concomitant]
     Active Substance: ATORVASTATIN
  6. BUMETANIDE [Concomitant]
     Active Substance: BUMETANIDE
  7. CELECOXIB [Concomitant]
     Active Substance: CELECOXIB
  8. CYANOCOBALAMIN [Concomitant]
     Active Substance: CYANOCOBALAMIN
  9. ESCITALOPRAM [Concomitant]
     Active Substance: ESCITALOPRAM OXALATE
  10. FAMCICLOVIR [Concomitant]
     Active Substance: FAMCICLOVIR
  11. METOPROLOL [Concomitant]
     Active Substance: METOPROLOL
  12. MIDODRINE [Concomitant]
     Active Substance: MIDODRINE
  13. PROPRANOLOL [Concomitant]
     Active Substance: PROPRANOLOL HYDROCHLORIDE
  14. TESTOSTERONE [Concomitant]
     Active Substance: TESTOSTERONE
  15. VITAMIN D [Concomitant]
     Active Substance: VITAMIN D NOS
  16. WIXELA INHUB [Concomitant]
     Active Substance: FLUTICASONE PROPIONATE\SALMETEROL XINAFOATE

REACTIONS (1)
  - Sepsis [None]
